FAERS Safety Report 8893874 (Version 2)
Quarter: 2012Q4

REPORT INFORMATION
  Report Type: 
  Country: US (occurrence: US)
  Receive Date: 20121107
  Receipt Date: 20121219
  Transmission Date: 20130627
  Serious: Yes (Other)
  Sender: FDA-Public Use
  Company Number: CHPA2012US022940

PATIENT
  Age: 81 Year
  Sex: Female

DRUGS (2)
  1. MYOFLEX ANALGESIC CREME [Suspect]
     Indication: NEUROPATHY PERIPHERAL
     Dosage: UNK, once or twice a day
     Route: 061
  2. DRUG THERAPY NOS [Concomitant]
     Indication: NEUROPATHY PERIPHERAL
     Dosage: 4 DF, QD

REACTIONS (2)
  - Drug dependence [Unknown]
  - Off label use [Unknown]
